FAERS Safety Report 7365769-5 (Version None)
Quarter: 2011Q1

REPORT INFORMATION
  Report Type: 
  Country: None (occurrence: None)
  Receive Date: 20110316
  Receipt Date: 20110316
  Transmission Date: 20110831
  Serious: Yes (Hospitalization)
  Sender: FDA-Public Use
  Company Number: None

PATIENT
  Age: 10 Year
  Sex: Female
  Weight: 42.6381 kg

DRUGS (1)
  1. AZITHROMYCIN [Suspect]
     Indication: PNEUMONIA MYCOPLASMAL
     Dosage: TEASPOON 1 TIME FOR 1 DAY PO, 1/2 TEASPOON 1 TIME FOR 1 DAY PO
     Route: 048
     Dates: start: 20110227, end: 20110228

REACTIONS (3)
  - DRUG HYPERSENSITIVITY [None]
  - STEVENS-JOHNSON SYNDROME [None]
  - CHROMATURIA [None]
